FAERS Safety Report 9050541 (Version 1)
Quarter: 2013Q1

REPORT INFORMATION
  Report Type: Spontaneous
  Country: GB (occurrence: GB)
  Receive Date: 20130205
  Receipt Date: 20130205
  Transmission Date: 20140127
  Serious: Yes (Hospitalization, Other)
  Sender: FDA-Public Use
  Company Number: GB-ELI_LILLY_AND_COMPANY-GB201301008181

PATIENT
  Age: 46 Year
  Sex: Female

DRUGS (5)
  1. EXENATIDE [Suspect]
     Indication: DIABETES MELLITUS
     Dosage: 10 UG, BID
  2. EXENATIDE [Suspect]
     Dosage: 1800 UG, SINGLE
  3. METFORMIN [Concomitant]
     Dosage: 850 MG, BID
  4. PIOGLITAZONE [Concomitant]
     Dosage: 15 MG, QD
  5. GLICLAZIDE [Concomitant]
     Dosage: 160 MG, BID

REACTIONS (4)
  - Blood glucose increased [Recovered/Resolved]
  - Nausea [Recovered/Resolved]
  - Vomiting [Recovered/Resolved]
  - Intentional overdose [Recovered/Resolved]
